FAERS Safety Report 12706452 (Version 1)
Quarter: 2016Q3

REPORT INFORMATION
  Report Type: Spontaneous
  Country: US (occurrence: US)
  Receive Date: 20160901
  Receipt Date: 20160901
  Transmission Date: 20161109
  Serious: No
  Sender: FDA-Public Use
  Company Number: US-PFIZER INC-2016399047

PATIENT
  Sex: Female

DRUGS (5)
  1. CELEBREX [Suspect]
     Active Substance: CELECOXIB
     Dosage: 200 MG, 2X/DAY
     Route: 048
     Dates: start: 20160410, end: 20160415
  2. CELEBREX [Suspect]
     Active Substance: CELECOXIB
     Indication: PAIN
     Dosage: 200 MG, UNK
     Route: 048
  3. CELEBREX [Suspect]
     Active Substance: CELECOXIB
     Indication: CHRONIC FATIGUE SYNDROME
     Dosage: 200 MG, UNK
     Route: 048
  4. CELECOXIB. [Suspect]
     Active Substance: CELECOXIB
     Indication: CHRONIC FATIGUE SYNDROME
     Dosage: 200 MG, 2X/DAY (MORNING AND NIGHT)
     Route: 048
     Dates: start: 20160328, end: 20160410
  5. CELECOXIB. [Suspect]
     Active Substance: CELECOXIB
     Indication: PAIN

REACTIONS (5)
  - Drug ineffective [Unknown]
  - Myalgia [Unknown]
  - Pain [Unknown]
  - Arthralgia [Unknown]
  - Product use issue [Unknown]
